FAERS Safety Report 6124471-8 (Version None)
Quarter: 2009Q1

REPORT INFORMATION
  Report Type: 
  Country: None (occurrence: None)
  Receive Date: 20090319
  Receipt Date: 20090313
  Transmission Date: 20090719
  Serious: Yes (Death)
  Sender: FDA-Public Use
  Company Number: US-TYCO HEALTHCARE/MALLINCKRODT-T200900013

PATIENT
  Sex: Female
  Weight: 55.782 kg

DRUGS (3)
  1. TUSSICAPS EXTENDED-RELEASE [Suspect]
     Dosage: 10 MG, SINGLE (ONE CAPSULE AFTER DINNER)
     Dates: start: 20081211, end: 20081211
  2. ACE INHIBITOR NOS [Concomitant]
  3. BETA BLOCKING AGENTS [Concomitant]

REACTIONS (1)
  - DYSPNOEA [None]
